FAERS Safety Report 15735790 (Version 1)
Quarter: 2018Q4

REPORT INFORMATION
  Report Type: Spontaneous
  Country: ES (occurrence: ES)
  Receive Date: 20181218
  Receipt Date: 20181218
  Transmission Date: 20190205
  Serious: Yes (Other)
  Sender: FDA-Public Use
  Company Number: ES-TEVA-2018-ES-987525

PATIENT
  Age: 75 Year
  Sex: Female

DRUGS (7)
  1. KENTERA [Suspect]
     Active Substance: OXYBUTYNIN
     Indication: INCONTINENCE
     Route: 061
     Dates: start: 20180413, end: 20181026
  2. JANUMET 50 MG/1000 MG COMPRIMIDOS RECUBIERTOS CON PELICULA, 56 COMPRIM [Concomitant]
     Indication: PRODUCT USED FOR UNKNOWN INDICATION
     Route: 048
     Dates: start: 20180412
  3. CALCIFEDIOL 0,266 MG 5 C?PSULAS (PRODUCTO) [Concomitant]
     Indication: VITAMIN D DEFICIENCY
     Route: 048
     Dates: start: 20180321
  4. ATACAND 16 MG COMPRIMIDOS, 28 COMPRIMIDOS [Concomitant]
     Indication: TYPE V HYPERLIPIDAEMIA
     Dosage: 1 DOSAGE FORMS DAILY;
     Route: 048
     Dates: start: 20110416
  5. PREVENCOR 10 MG COMPRIMIDOS RECUBIERTOS CON PELICULA , 28 COMPRIMIDOS [Concomitant]
     Indication: PRODUCT USED FOR UNKNOWN INDICATION
     Dosage: 1 DOSAGE FORMS DAILY;
     Route: 048
     Dates: start: 20150707
  6. EUTIROX 112 MICROGRAMOS COMPRIMIDOS , 100 COMPRIMIDOS [Concomitant]
     Indication: HYPOTHYROIDISM
     Route: 048
     Dates: start: 20130419
  7. EUTIROX 125 MICROGRAMOS COMPRIMIDOS , 100 COMPRIMIDOS [Concomitant]
     Indication: HYPOTHYROIDISM
     Route: 048
     Dates: start: 20170531

REACTIONS (1)
  - Toxic skin eruption [Not Recovered/Not Resolved]

NARRATIVE: CASE EVENT DATE: 20180413
